FAERS Safety Report 12509189 (Version 1)
Quarter: 2016Q2

REPORT INFORMATION
  Report Type: Spontaneous
  Country: US (occurrence: US)
  Receive Date: 20160629
  Receipt Date: 20160629
  Transmission Date: 20160815
  Serious: Yes (Hospitalization)
  Sender: FDA-Public Use
  Company Number: US-ACTELION-A-NJ2016-138412

PATIENT
  Age: 62 Year
  Sex: Female

DRUGS (3)
  1. COUMADIN [Concomitant]
     Active Substance: WARFARIN SODIUM
  2. TRACLEER [Suspect]
     Active Substance: BOSENTAN
     Indication: PULMONARY ARTERIAL HYPERTENSION
     Dosage: 125 MG, BID
     Route: 048
     Dates: start: 20070821
  3. DILTIAZEM [Concomitant]
     Active Substance: DILTIAZEM

REACTIONS (6)
  - Oedema peripheral [Unknown]
  - Fall [Unknown]
  - Malaise [Unknown]
  - Poor quality sleep [Unknown]
  - Hypotension [Unknown]
  - Nightmare [Unknown]
